FAERS Safety Report 18864681 (Version 1)
Quarter: 2021Q1

REPORT INFORMATION
  Report Type: Spontaneous
  Country: US (occurrence: US)
  Receive Date: 20210208
  Receipt Date: 20210208
  Transmission Date: 20210420
  Serious: Yes (Hospitalization)
  Sender: FDA-Public Use
  Company Number: US-TEVA-2021-US-1876409

PATIENT
  Age: 49 Year
  Sex: Female

DRUGS (1)
  1. NEFAZODONE HYDROCHLORIDE. [Suspect]
     Active Substance: NEFAZODONE HYDROCHLORIDE
     Route: 065
     Dates: end: 202011

REACTIONS (6)
  - Tremor [Recovering/Resolving]
  - Speech disorder [Recovering/Resolving]
  - Movement disorder [Recovering/Resolving]
  - Feeling abnormal [Recovering/Resolving]
  - Disorientation [Recovering/Resolving]
  - Thinking abnormal [Recovering/Resolving]

NARRATIVE: CASE EVENT DATE: 202011
